FAERS Safety Report 10803764 (Version 1)
Quarter: 2015Q1

REPORT INFORMATION
  Report Type: Spontaneous
  Country: JP (occurrence: JP)
  Receive Date: 20150217
  Receipt Date: 20150217
  Transmission Date: 20150721
  Serious: Yes (Other)
  Sender: FDA-Public Use
  Company Number: JP-SHIRE-JP201501206

PATIENT
  Age: 64 Year
  Sex: Male

DRUGS (1)
  1. 405 (LANTHANUM CARBONATE) [Suspect]
     Active Substance: LANTHANUM CARBONATE
     Indication: HYPERPHOSPHATAEMIA
     Dosage: 750 MG (250 MG X3 TIMES DAILY)
     Route: 048

REACTIONS (4)
  - Biopsy intestine abnormal [Unknown]
  - Helicobacter infection [Unknown]
  - Abdominal discomfort [Unknown]
  - Gastric polyps [Unknown]
